FAERS Safety Report 5480629-2 (Version None)
Quarter: 2007Q4

REPORT INFORMATION
  Report Type: 
  Country: None (occurrence: None)
  Receive Date: 20071009
  Receipt Date: 20071002
  Transmission Date: 20080405
  Serious: Yes (Hospitalization)
  Sender: FDA-Public Use
  Company Number: US-JNJFOC-20070300336

PATIENT
  Sex: Female
  Weight: 74.62 kg

DRUGS (3)
  1. ORTHO EVRA [Suspect]
     Indication: CONTRACEPTION
     Route: 062
  2. ZOLOFT [Concomitant]
  3. XANAX [Concomitant]

REACTIONS (1)
  - SPLENIC INFARCTION [None]
